FAERS Safety Report 8891003 (Version 1)
Quarter: 2012Q4

REPORT INFORMATION
  Report Type: 
  Country: US (occurrence: US)
  Receive Date: 20121106
  Receipt Date: 20121106
  Transmission Date: 20130627
  Serious: Yes (Disabling)
  Sender: FDA-Public Use
  Company Number: US-PFIZER INC-2012276602

PATIENT
  Age: 65 Year
  Sex: Male
  Weight: 128.35 kg

DRUGS (9)
  1. LIPITOR [Suspect]
     Indication: HIGH CHOLESTEROL
     Dosage: 40 mg, 1x/day
     Route: 048
     Dates: end: 201209
  2. ARTHROTEC [Suspect]
     Indication: BACK DISORDER
     Dosage: 75 mg/0.2 mg, 2x/day
     Route: 048
  3. ARTHROTEC [Suspect]
     Indication: JOINT DISORDER
  4. CARVEDILOL [Concomitant]
     Dosage: 12.5 mg, 2x/day
  5. CAPTOPRIL [Concomitant]
     Dosage: 50 mg, 2x/day
  6. COZAAR [Concomitant]
     Dosage: 25 mg, 2x/day
  7. ASPIRIN [Concomitant]
     Dosage: 81 mg, 1x/day
  8. ULTRAM [Concomitant]
     Dosage: 100 mg, 3x/day
  9. FLEXERIL [Concomitant]
     Dosage: 10 mg, 3x/day

REACTIONS (5)
  - Intervertebral disc protrusion [Unknown]
  - Eosinophilic oesophagitis [Unknown]
  - Radiculopathy [Unknown]
  - Back disorder [Unknown]
  - Arthropathy [Unknown]
